FAERS Safety Report 9134463 (Version 1)
Quarter: 2013Q1

REPORT INFORMATION
  Report Type: Spontaneous
  Country: US (occurrence: US)
  Receive Date: 20130304
  Receipt Date: 20130304
  Transmission Date: 20140127
  Serious: No
  Sender: FDA-Public Use
  Company Number: US-ENDO PHARMACEUTICALS INC.-VALS20100109

PATIENT
  Age: 49 Year
  Sex: Female
  Weight: 113.5 kg

DRUGS (1)
  1. VALSTAR [Suspect]
     Indication: ACCIDENTAL EXPOSURE TO PRODUCT
     Dosage: NA
     Dates: start: 20101015, end: 20101015

REACTIONS (2)
  - Accidental exposure to product [Recovered/Resolved]
  - Flushing [Recovered/Resolved]
